FAERS Safety Report 18677749 (Version 1)
Quarter: 2020Q4

REPORT INFORMATION
  Report Type: Spontaneous
  Country: IT (occurrence: IT)
  Receive Date: 20201229
  Receipt Date: 20201229
  Transmission Date: 20210114
  Serious: Yes (Other)
  Sender: FDA-Public Use
  Company Number: NVSC2020IT338417

PATIENT
  Age: 81 Year
  Sex: Female

DRUGS (2)
  1. PARACETAMOL [Suspect]
     Active Substance: ACETAMINOPHEN
     Indication: ARTHRALGIA
     Dosage: 1 DF, TOTAL
     Route: 048
     Dates: start: 20201122, end: 20201122
  2. LEXIL [Suspect]
     Active Substance: BROMAZEPAM\PROPANTHELINE BROMIDE
     Indication: MUSCLE SPASTICITY
     Dosage: 1 DF, TOTAL
     Route: 048
     Dates: start: 20201122, end: 20201122

REACTIONS (3)
  - Presyncope [Recovering/Resolving]
  - Nausea [Recovering/Resolving]
  - Vomiting [Recovering/Resolving]

NARRATIVE: CASE EVENT DATE: 20201122
